FAERS Safety Report 14390520 (Version 1)
Quarter: 2018Q1

REPORT INFORMATION
  Report Type: Spontaneous
  Country: US (occurrence: US)
  Receive Date: 20180116
  Receipt Date: 20180116
  Transmission Date: 20180509
  Serious: Yes (Other)
  Sender: FDA-Public Use
  Company Number: US-TEVA-2018-US-847027

PATIENT
  Age: 78 Year
  Sex: Male

DRUGS (2)
  1. MUCUS ER [Suspect]
     Active Substance: GUAIFENESIN
     Indication: UPPER-AIRWAY COUGH SYNDROME
     Dosage: 1 TABLET, SINGLE
     Route: 048
     Dates: start: 201801, end: 201801
  2. MUCUS ER [Suspect]
     Active Substance: GUAIFENESIN
     Dosage: 2 HALVES OF TABLET, SINGLE
     Route: 048
     Dates: start: 20180104, end: 20180104

REACTIONS (2)
  - Choking [Recovered/Resolved]
  - Wrong technique in product usage process [Unknown]

NARRATIVE: CASE EVENT DATE: 201801
